FAERS Safety Report 5169548-9 (Version None)
Quarter: 2006Q4

REPORT INFORMATION
  Report Type: 
  Country: None (occurrence: None)
  Receive Date: 20061204
  Receipt Date: 20061128
  Transmission Date: 20070319
  Serious: Yes (Death, Hospitalization)
  Sender: FDA-Public Use
  Company Number: US-2006-036839

PATIENT
  Sex: Male

DRUGS (7)
  1. CAMPATH [Suspect]
     Indication: CHRONIC LYMPHOCYTIC LEUKAEMIA
     Dosage: D1-5 EVERY 28 DAYS, SUBCUTANEOUS
     Route: 058
     Dates: start: 20060710, end: 20060915
  2. FLUDARA [Suspect]
     Indication: CHRONIC LYMPHOCYTIC LEUKAEMIA
     Dosage: D1-5 EVERY 28 DAYS, INTRAVENOUS
     Route: 042
     Dates: start: 20060710, end: 20060915
  3. ADRIAMYCIN PFS [Concomitant]
  4. RITUXAN [Concomitant]
  5. VINCRISTINE [Concomitant]
  6. NEULASTA [Concomitant]
  7. ADRIAMYCIN PFS [Concomitant]

REACTIONS (16)
  - ADENOVIRUS INFECTION [None]
  - BLOOD CULTURE POSITIVE [None]
  - CEREBRAL ATROPHY [None]
  - CHRONIC LYMPHOCYTIC LEUKAEMIA [None]
  - CONVULSION [None]
  - CULTURE URINE POSITIVE [None]
  - DISEASE PROGRESSION [None]
  - ENCEPHALOPATHY [None]
  - FEBRILE NEUTROPENIA [None]
  - INFECTION [None]
  - LUNG INFILTRATION [None]
  - LUNG NEOPLASM [None]
  - LYMPHADENOPATHY [None]
  - PANCYTOPENIA [None]
  - RENAL FAILURE [None]
  - STAPHYLOCOCCAL INFECTION [None]
